FAERS Safety Report 14798714 (Version 3)
Quarter: 2018Q4

REPORT INFORMATION
  Report Type: Report from Study
  Country: US (occurrence: US)
  Receive Date: 20180424
  Receipt Date: 20181105
  Transmission Date: 20190204
  Serious: Yes (Death, Hospitalization)
  Sender: FDA-Public Use
  Company Number: US-ACTELION-A-CH2018-168166

PATIENT
  Age: 69 Year
  Sex: Female
  Weight: 85.1 kg

DRUGS (18)
  1. MACITENTAN [Suspect]
     Active Substance: MACITENTAN
     Indication: PULMONARY ARTERIAL HYPERTENSION
     Dosage: 10 MG, OD
     Route: 048
     Dates: start: 20170221, end: 20180311
  2. ESTROGEN [Concomitant]
     Active Substance: ESTROGENS
     Dosage: UNK
     Dates: start: 2013
  3. VITAMIN D3 [Concomitant]
     Active Substance: CHOLECALCIFEROL
     Dosage: UNK
     Dates: start: 2013
  4. XEROFORM [Concomitant]
     Dosage: UNK
     Dates: start: 20171201
  5. RANITIDINE. [Concomitant]
     Active Substance: RANITIDINE
     Dosage: UNK
     Dates: start: 2013
  6. POTASSIUM CHLORIDE. [Concomitant]
     Active Substance: POTASSIUM CHLORIDE
     Dosage: UNK
     Dates: start: 20170830
  7. MACITENTAN [Suspect]
     Active Substance: MACITENTAN
     Indication: PULMONARY ARTERIAL HYPERTENSION
     Dosage: 10 MG, OD
     Route: 048
     Dates: start: 20170221, end: 20180311
  8. ADCIRCA [Suspect]
     Active Substance: TADALAFIL
     Dosage: 20 MG, OD
     Route: 048
     Dates: start: 20170221, end: 20180227
  9. ADCIRCA [Suspect]
     Active Substance: TADALAFIL
     Indication: PULMONARY ARTERIAL HYPERTENSION
     Dosage: 40 MG, OD
     Route: 048
     Dates: start: 20180228, end: 20180311
  10. BLINDED PLACEBO [Suspect]
     Active Substance: INVESTIGATIONAL PRODUCT
     Dosage: 200 ?G, BID
     Route: 048
     Dates: start: 20170307, end: 20170314
  11. DYAZIDE [Concomitant]
     Active Substance: HYDROCHLOROTHIAZIDE\TRIAMTERENE
     Dosage: UNK
     Dates: start: 2013
  12. BLINDED PLACEBO [Suspect]
     Active Substance: INVESTIGATIONAL PRODUCT
     Indication: PULMONARY ARTERIAL HYPERTENSION
     Dosage: 1600 ?G, BID
     Route: 048
     Dates: start: 20170502, end: 20180221
  13. BLINDED SELEXIPAG [Suspect]
     Active Substance: SELEXIPAG
     Indication: PULMONARY ARTERIAL HYPERTENSION
     Dosage: 1600 ?G, BID
     Route: 048
     Dates: start: 20170502, end: 20180221
  14. ESOMEPRAZOLE. [Concomitant]
     Active Substance: ESOMEPRAZOLE MAGNESIUM
     Dosage: UNK
     Dates: start: 2013
  15. LEVOTHYROXINE. [Concomitant]
     Active Substance: LEVOTHYROXINE
     Dosage: UNK
     Dates: start: 2013
  16. OXYGEN. [Concomitant]
     Active Substance: OXYGEN
     Dosage: UNK
     Dates: start: 20170221
  17. MUPIROCIN. [Concomitant]
     Active Substance: MUPIROCIN
     Dosage: UNK
     Dates: start: 20171201
  18. BLINDED SELEXIPAG [Suspect]
     Active Substance: SELEXIPAG
     Dosage: 200 ?G, BID
     Route: 048
     Dates: start: 20170307, end: 20170314

REACTIONS (44)
  - Dyspnoea [Fatal]
  - Hypoxia [Fatal]
  - Sinus congestion [Fatal]
  - Blood alkaline phosphatase increased [Fatal]
  - Respiratory arrest [Fatal]
  - Renal failure [Unknown]
  - Alanine aminotransferase increased [Fatal]
  - Delirium [Unknown]
  - Enzyme level increased [Unknown]
  - Back pain [Unknown]
  - Pathogen resistance [Unknown]
  - Asthenia [Fatal]
  - Mobility decreased [Unknown]
  - Oxygen consumption increased [Fatal]
  - Blood bilirubin increased [Fatal]
  - Pulmonary oedema [Fatal]
  - Pulmonary capillary haemangiomatosis [Fatal]
  - Thrombosis [Fatal]
  - Respiratory failure [Fatal]
  - Oedema peripheral [Fatal]
  - Cardiac failure [Fatal]
  - Pleural effusion [Fatal]
  - Pulmonary veno-occlusive disease [Fatal]
  - Escherichia urinary tract infection [Unknown]
  - Compression fracture [Unknown]
  - Malnutrition [Unknown]
  - Blood creatinine increased [Unknown]
  - Product dose omission [Unknown]
  - Anal incontinence [Unknown]
  - Fluid overload [Fatal]
  - Acute kidney injury [Unknown]
  - Aspartate aminotransferase increased [Fatal]
  - Blood glucose decreased [Fatal]
  - Lactic acidosis [Fatal]
  - Muscular weakness [Fatal]
  - Urinary tract infection [Unknown]
  - Malaise [Fatal]
  - Condition aggravated [Fatal]
  - Dyspnoea exertional [Fatal]
  - Pulmonary artery wall hypertrophy [Fatal]
  - Pulmonary congestion [Fatal]
  - Right ventricular failure [Fatal]
  - Encephalopathy [Unknown]
  - Brain natriuretic peptide increased [Fatal]

NARRATIVE: CASE EVENT DATE: 20180220
